FAERS Safety Report 15180211 (Version 5)
Quarter: 2019Q1

REPORT INFORMATION
  Report Type: Report from Study
  Country: GB (occurrence: GB)
  Receive Date: 20180723
  Receipt Date: 20190312
  Transmission Date: 20190417
  Serious: Yes (Other)
  Sender: FDA-Public Use
  Company Number: GB-BRISTOL-MYERS SQUIBB COMPANY-BMS-2017-037788

PATIENT
  Sex: Female

DRUGS (2)
  1. ABATACEPT [Suspect]
     Active Substance: ABATACEPT
     Indication: RHEUMATOID ARTHRITIS
     Dosage: 125 MG, QWK
     Route: 058
     Dates: start: 20160229
  2. ABATACEPT [Suspect]
     Active Substance: ABATACEPT
     Indication: PSORIATIC ARTHROPATHY
     Route: 065

REACTIONS (11)
  - Photodermatosis [Unknown]
  - Off label use [Unknown]
  - Infection [Unknown]
  - Urinary tract infection [Not Recovered/Not Resolved]
  - Tooth abscess [Unknown]
  - Product dose omission [Unknown]
  - Arthropathy [Unknown]
  - Joint swelling [Unknown]
  - Dementia [Unknown]
  - Urinary incontinence [Unknown]
  - Lower respiratory tract infection [Unknown]
